FAERS Safety Report 18296502 (Version 3)
Quarter: 2020Q4

REPORT INFORMATION
  Report Type: Other
  Country: CA (occurrence: CA)
  Receive Date: 20200922
  Receipt Date: 20201102
  Transmission Date: 20210113
  Serious: Yes (Death)
  Sender: FDA-Public Use
  Company Number: CA-APOTEX-2020AP017897

PATIENT
  Age: 17 Year
  Sex: Female

DRUGS (9)
  1. ANTI HUMAN T LYMPHOCYTE PORCINE IMMUNOGLOBULIN [Concomitant]
     Indication: IMMUNOSUPPRESSANT DRUG THERAPY
     Dosage: 15 MILLIGRAM/KILOGRAM
     Route: 065
  2. CYTOMEGALOVIRUS IMMUNE GLOBULIN [Concomitant]
     Active Substance: HUMAN CYTOMEGALOVIRUS IMMUNE GLOBULIN
     Indication: PRODUCT USED FOR UNKNOWN INDICATION
     Dosage: UNK
     Route: 065
  3. AZATHIOPRINE. [Concomitant]
     Active Substance: AZATHIOPRINE
     Indication: IMMUNOSUPPRESSANT DRUG THERAPY
     Dosage: 2.5 MILLIGRAM/KILOGRAM, QD
     Route: 065
  4. PREDNISONE. [Concomitant]
     Active Substance: PREDNISONE
     Indication: IMMUNOSUPPRESSANT DRUG THERAPY
     Dosage: 2.0 MILLIGRAM/KILOGRAM, QD
     Route: 065
  5. ACYCLOVIR [ACICLOVIR SODIUM] [Suspect]
     Active Substance: ACYCLOVIR
     Indication: EPSTEIN-BARR VIRUS INFECTION
  6. CICLOSPORIN [Concomitant]
     Active Substance: CYCLOSPORINE
     Indication: IMMUNOSUPPRESSANT DRUG THERAPY
     Dosage: 5 MILLIGRAM/KILOGRAM, QD
     Route: 065
  7. ACYCLOVIR. [Suspect]
     Active Substance: ACYCLOVIR
     Indication: VIRAL INFECTION
     Dosage: UNK
     Route: 065
  8. ACYCLOVIR [ACICLOVIR SODIUM] [Suspect]
     Active Substance: ACYCLOVIR
     Indication: VIRAL INFECTION
     Dosage: UNK
     Route: 042
  9. ACYCLOVIR. [Suspect]
     Active Substance: ACYCLOVIR
     Indication: EPSTEIN-BARR VIRUS INFECTION

REACTIONS (1)
  - Drug ineffective [Fatal]
